FAERS Safety Report 5213057-5 (Version None)
Quarter: 2007Q1

REPORT INFORMATION
  Report Type: 
  Country: None (occurrence: None)
  Receive Date: 20070119
  Receipt Date: 20070110
  Transmission Date: 20070707
  Serious: Yes (Other)
  Sender: FDA-Public Use
  Company Number: NSADSS2002038511

PATIENT
  Age: 60 Year
  Sex: Male

DRUGS (3)
  1. REMICADE [Suspect]
     Route: 041
  2. REMICADE [Suspect]
     Indication: ANKYLOSING SPONDYLITIS
     Route: 041
  3. METHOTREXATE [Concomitant]

REACTIONS (1)
  - LICHEN PLANUS [None]
